FAERS Safety Report 6616535-7 (Version None)
Quarter: 2010Q1

REPORT INFORMATION
  Report Type: 
  Country: None (occurrence: None)
  Receive Date: 20100305
  Receipt Date: 20100223
  Transmission Date: 20100710
  Serious: Yes (Other)
  Sender: FDA-Public Use
  Company Number: JP-PFIZER INC-2010023145

PATIENT
  Age: 80 Year
  Sex: Male

DRUGS (3)
  1. ZYVOX [Suspect]
     Indication: STAPHYLOCOCCAL INFECTION
     Dosage: 1200 MG/DAY
     Route: 042
     Dates: start: 20100128, end: 20100210
  2. HEPARIN SODIUM [Suspect]
  3. VANCOMYCIN HYDROCHLORIDE [Suspect]
     Indication: HIP ARTHROPLASTY

REACTIONS (2)
  - PETECHIAE [None]
  - PLATELET COUNT DECREASED [None]
